FAERS Safety Report 5263679-0 (Version None)
Quarter: 2007Q1

REPORT INFORMATION
  Report Type: 
  Country: None (occurrence: None)
  Receive Date: 20070312
  Receipt Date: 20070312
  Transmission Date: 20070707
  Serious: No
  Sender: FDA-Public Use
  Company Number: None

PATIENT
  Age: 51 Year
  Sex: Female

DRUGS (2)
  1. SYNTHROID [Suspect]
     Indication: HYPOTHYROIDISM
     Dosage: TABLET BOTTLE 30 TABS
  2. LEVOTHYROXINE SODIUM [Suspect]
     Dosage: TABLET

REACTIONS (2)
  - INTERCEPTED DRUG DISPENSING ERROR [None]
  - MEDICATION ERROR [None]
